FAERS Safety Report 18501587 (Version 1)
Quarter: 2020Q4

REPORT INFORMATION
  Report Type: Spontaneous
  Country: US (occurrence: US)
  Receive Date: 20201113
  Receipt Date: 20201113
  Transmission Date: 20210114
  Serious: Yes (Other)
  Sender: FDA-Public Use
  Company Number: US-SA-2020SA313820

PATIENT

DRUGS (1)
  1. DULCOLAX STOOL SOFTENER [Suspect]
     Active Substance: DOCUSATE SODIUM
     Dosage: 1 DF
     Route: 065

REACTIONS (5)
  - Cataract [Unknown]
  - Drug hypersensitivity [Unknown]
  - Malaise [Unknown]
  - Oropharyngeal pain [Unknown]
  - Dysuria [Unknown]
